FAERS Safety Report 18867423 (Version 1)
Quarter: 2021Q1

REPORT INFORMATION
  Report Type: Spontaneous
  Country: CN (occurrence: CN)
  Receive Date: 20210209
  Receipt Date: 20210209
  Transmission Date: 20210420
  Serious: Yes (Disabling)
  Sender: FDA-Public Use
  Company Number: CN-PFIZER INC-03H-035-0235478-00

PATIENT
  Age: 46 Year
  Sex: Male

DRUGS (3)
  1. EPINEPHRINE. [Suspect]
     Active Substance: EPINEPHRINE
     Indication: ANAESTHESIA
     Dosage: FREQ: IN INCREMENTAL DOSES
     Route: 008
  2. LIDOCAINE HCL [Suspect]
     Active Substance: LIDOCAINE HYDROCHLORIDE
     Indication: ANAESTHESIA
     Dosage: FREQ: IN INCREMENTAL DOSES, (2%)
     Route: 008
  3. SODIUM BICARBONATE. [Concomitant]
     Active Substance: SODIUM BICARBONATE
     Indication: ANAESTHESIA
     Dosage: FREQ: IN INCREMENTAL DOSES
     Route: 008

REACTIONS (2)
  - Neurogenic bladder [Recovering/Resolving]
  - Cauda equina syndrome [Recovering/Resolving]

NARRATIVE: CASE EVENT DATE: 20030101
